FAERS Safety Report 21229728 (Version 2)
Quarter: 2022Q3

REPORT INFORMATION
  Report Type: Report from Study
  Country: US (occurrence: US)
  Receive Date: 20220818
  Receipt Date: 20220920
  Transmission Date: 20221026
  Serious: Yes (Death, Hospitalization, Other)
  Sender: FDA-Public Use
  Company Number: US-CELGENE-USA-20200803267

PATIENT
  Age: 68 Year
  Sex: Male
  Weight: 61.5 kg

DRUGS (11)
  1. POMALIDOMIDE [Suspect]
     Active Substance: POMALIDOMIDE
     Indication: Plasma cell myeloma
     Dosage: 2 MILLIGRAM?ONCE A DAY FOR 21 DAYS ON 28 DAY CYCLE
     Route: 048
     Dates: start: 20150717, end: 20151118
  2. POMALIDOMIDE [Suspect]
     Active Substance: POMALIDOMIDE
     Dosage: 2 MILLIGRAM?ONCE A DAY FOR 21 DAYS ON 28 DAY CYCLE
     Route: 048
     Dates: start: 20160325, end: 20170724
  3. POMALIDOMIDE [Suspect]
     Active Substance: POMALIDOMIDE
     Dosage: 2 MILLIGRAM?21 DAYS ON 28 DAY CYCLE
     Route: 048
     Dates: start: 20190725, end: 20190824
  4. REVLIMID [Suspect]
     Active Substance: LENALIDOMIDE
     Indication: Plasma cell myeloma
     Dosage: 21 DAYS ON, 7 DAYS OFF
     Route: 048
     Dates: start: 20111121, end: 20120202
  5. REVLIMID [Suspect]
     Active Substance: LENALIDOMIDE
     Dosage: 15 MILLIGRAM?14 DAYS ON, 7 DAYS OFF
     Route: 048
     Dates: start: 20120608, end: 20120827
  6. REVLIMID [Suspect]
     Active Substance: LENALIDOMIDE
     Dosage: 10 MILLIGRAM?21 DAYS ON, 7 DAYS OFF
     Route: 048
     Dates: start: 20120921, end: 20150623
  7. DEXAMETHASONE [Suspect]
     Active Substance: DEXAMETHASONE
     Indication: Plasma cell myeloma
     Dosage: 6 MILLIGRAM
     Route: 042
     Dates: start: 2020, end: 202003
  8. DEXAMETHASONE [Suspect]
     Active Substance: DEXAMETHASONE
     Dosage: 16 MILLIGRAM
     Route: 048
     Dates: start: 20200722, end: 202007
  9. DEXAMETHASONE [Suspect]
     Active Substance: DEXAMETHASONE
     Dosage: FREQUENCY TEXT: NOT PROVIDED?REDUCED DOSE
     Route: 048
     Dates: start: 20200730
  10. EMPLICITI [Suspect]
     Active Substance: ELOTUZUMAB
     Indication: Plasma cell myeloma
     Route: 042
     Dates: start: 20190731, end: 20200924
  11. DEXAMETHASONE [Suspect]
     Active Substance: DEXAMETHASONE
     Indication: Plasma cell myeloma
     Dosage: DAYS 1,8,15,22
     Route: 042
     Dates: start: 20190731, end: 20200924

REACTIONS (5)
  - COVID-19 pneumonia [Fatal]
  - Pneumothorax [Fatal]
  - Pneumomediastinum [Fatal]
  - Respiratory failure [Recovered/Resolved]
  - Off label use [Unknown]

NARRATIVE: CASE EVENT DATE: 20200730
